FAERS Safety Report 24211750 (Version 1)
Quarter: 2024Q3

REPORT INFORMATION
  Report Type: Spontaneous
  Country: DE (occurrence: DE)
  Receive Date: 20240814
  Receipt Date: 20240814
  Transmission Date: 20241017
  Serious: Yes (Hospitalization)
  Sender: BAUSCH AND LOMB
  Company Number: DE-BAUSCH-BL-2024-012337

PATIENT
  Age: 77 Year
  Sex: Male

DRUGS (2)
  1. PLENVU [Suspect]
     Active Substance: ASCORBIC ACID\POLYETHYLENE GLYCOL 3350\POTASSIUM CHLORIDE\SODIUM ASCORBATE\SODIUM CHLORIDE\SODIUM SU
     Indication: Bowel preparation
     Dosage: TOOK 2 TO 3 YEARS AGO
     Route: 065
  2. PLENVU [Suspect]
     Active Substance: ASCORBIC ACID\POLYETHYLENE GLYCOL 3350\POTASSIUM CHLORIDE\SODIUM ASCORBATE\SODIUM CHLORIDE\SODIUM SU
     Dosage: 7 HRS
     Route: 065
     Dates: start: 20240729, end: 20240730

REACTIONS (6)
  - Gastrointestinal wall thickening [Unknown]
  - Nephritic syndrome [Not Recovered/Not Resolved]
  - Colitis [Recovering/Resolving]
  - Hypersensitivity [Unknown]
  - Vomiting projectile [Unknown]
  - Abdominal pain upper [Unknown]

NARRATIVE: CASE EVENT DATE: 20240101
